FAERS Safety Report 6986523-X (Version None)
Quarter: 2010Q3

REPORT INFORMATION
  Report Type: 
  Country: None (occurrence: None)
  Receive Date: 20100827
  Receipt Date: 20091116
  Transmission Date: 20110219
  Serious: Yes (Other)
  Sender: FDA-Public Use
  Company Number: AMAG200900053

PATIENT
  Age: 65 Year
  Sex: Male

DRUGS (11)
  1. FERAHEME [Suspect]
     Indication: IRON DEFICIENCY ANAEMIA
     Dosage: 3 ML, 90 MG SINGLE
     Dates: start: 20091116, end: 20091116
  2. HEPARIN [Concomitant]
  3. ZEMPLAR [Concomitant]
  4. ACCUPRO (QUINAPRIL HYDROCHLORIDE) [Concomitant]
  5. ASPIRIN [Concomitant]
  6. ATENOLOL [Concomitant]
  7. COZAAR [Concomitant]
  8. VITAMIN B COMPLEX (ASCORBIC ACID, CALCIUM PANTOTHENATE, NICOTINAMIDE, [Concomitant]
  9. FOSRENOL [Concomitant]
  10. NORVASC [Concomitant]
  11. SENSIPAR [Concomitant]

REACTIONS (3)
  - HYPERHIDROSIS [None]
  - HYPOTENSION [None]
  - NAUSEA [None]
